FAERS Safety Report 5128741-1 (Version None)
Quarter: 2006Q4

REPORT INFORMATION
  Report Type: 
  Country: None (occurrence: None)
  Receive Date: 20061017
  Receipt Date: 20061011
  Transmission Date: 20070319
  Serious: Yes (Death, Hospitalization)
  Sender: FDA-Public Use
  Company Number: 2006GB01849

PATIENT
  Age: 65 Year
  Sex: Female

DRUGS (7)
  1. QUETIAPINE [Suspect]
     Indication: BIPOLAR DISORDER
     Route: 048
     Dates: start: 20051101
  2. IBUPROFEN [Concomitant]
     Route: 048
  3. HYPROMELLOSE EYE DROPS [Concomitant]
     Dosage: AS DIRECTED
  4. VALPROATE SODIUM [Concomitant]
     Indication: BIPOLAR DISORDER
     Dosage: 300MG + 500MG DAILY
     Route: 048
  5. PREDNISOLONE [Concomitant]
     Route: 048
  6. CALCICHEW D3 FORTE [Concomitant]
     Route: 048
  7. ALENDRONIC ACID [Concomitant]
     Route: 048

REACTIONS (15)
  - ANTICONVULSANT DRUG LEVEL BELOW THERAPEUTIC [None]
  - CARDIOMEGALY [None]
  - CONFUSIONAL STATE [None]
  - DIALYSIS [None]
  - EPILEPSY [None]
  - EUPHORIC MOOD [None]
  - FALL [None]
  - HYPOTHERMIA [None]
  - INCORRECT DOSE ADMINISTERED [None]
  - INTESTINAL INFARCTION [None]
  - MULTI-ORGAN FAILURE [None]
  - MYOCARDIAL INFARCTION [None]
  - RENAL FAILURE [None]
  - RHABDOMYOLYSIS [None]
  - SEPSIS [None]
